FAERS Safety Report 9531787 (Version 1)
Quarter: 2013Q3

REPORT INFORMATION
  Report Type: Spontaneous
  Country: US (occurrence: US)
  Receive Date: 20130918
  Receipt Date: 20130918
  Transmission Date: 20140515
  Serious: No
  Sender: FDA-Public Use
  Company Number: US-PFIZER INC-2013264787

PATIENT
  Age: 72 Year
  Sex: Male
  Weight: 118 kg

DRUGS (4)
  1. TOVIAZ [Suspect]
     Indication: BLADDER DISORDER
     Dosage: 8 MG, 1X/DAY
     Route: 048
     Dates: start: 20130911
  2. LOPRESSOR [Suspect]
     Indication: HYPERTENSION
     Dosage: UNK, 2X/DAY
  3. CYMBALTA [Suspect]
     Indication: NEUROPATHY PERIPHERAL
     Dosage: 30 MG, 2X/DAY
  4. VASOTEC [Suspect]
     Indication: HYPERTENSION
     Dosage: UNK, 2X/DAY

REACTIONS (3)
  - Dizziness [Recovered/Resolved]
  - Body temperature increased [Recovered/Resolved]
  - Balance disorder [Recovered/Resolved]
